FAERS Safety Report 6063563-9 (Version None)
Quarter: 2009Q1

REPORT INFORMATION
  Report Type: 
  Country: None (occurrence: None)
  Receive Date: 20090129
  Receipt Date: 20090114
  Transmission Date: 20090719
  Serious: Yes (Other)
  Sender: FDA-Public Use
  Company Number: 20090009 /

PATIENT
  Age: 22 Year
  Sex: Female

DRUGS (1)
  1. VENOFER [Suspect]
     Indication: IRON DEFICIENCY ANAEMIA
     Dosage: 200MG WEEKLY INTRAVENOUS
     Route: 042
     Dates: start: 20081229, end: 20081229

REACTIONS (3)
  - DYSPHAGIA [None]
  - THROAT IRRITATION [None]
  - THROAT TIGHTNESS [None]
